FAERS Safety Report 10896888 (Version 2)
Quarter: 2015Q1

REPORT INFORMATION
  Report Type: Spontaneous
  Country: GB (occurrence: GB)
  Receive Date: 20150309
  Receipt Date: 20150312
  Transmission Date: 20150721
  Serious: No
  Sender: FDA-Public Use
  Company Number: GB-TEVA-545726ISR

PATIENT
  Age: 54 Year
  Sex: Female

DRUGS (1)
  1. CITALOPRAM [Suspect]
     Active Substance: CITALOPRAM HYDROBROMIDE
     Dosage: 20-40 MG
     Route: 065

REACTIONS (2)
  - Alcohol use [Unknown]
  - Weight decreased [Unknown]
